FAERS Safety Report 15844658 (Version 2)
Quarter: 2019Q1

REPORT INFORMATION
  Report Type: Report from Study
  Country: US (occurrence: US)
  Receive Date: 20190118
  Receipt Date: 20190305
  Transmission Date: 20190417
  Serious: No
  Sender: FDA-Public Use
  Company Number: PHEH2019US002602

PATIENT
  Age: 40 Year
  Sex: Male

DRUGS (1)
  1. COSENTYX [Suspect]
     Active Substance: SECUKINUMAB
     Indication: PSORIASIS
     Dosage: 300 MG, Q4W (INJECT 2 PENS (300 MG) ONCE EVERY FOUR WEEKS AS DIRECTED)
     Route: 058

REACTIONS (3)
  - Inappropriate schedule of product administration [Unknown]
  - Macule [Unknown]
  - Drug ineffective [Unknown]
